FAERS Safety Report 7521662-6 (Version None)
Quarter: 2011Q2

REPORT INFORMATION
  Report Type: 
  Country: None (occurrence: None)
  Receive Date: 20110524
  Receipt Date: 20110516
  Transmission Date: 20111010
  Serious: Yes (Hospitalization, Other)
  Sender: FDA-Public Use
  Company Number: 1000015237

PATIENT
  Age: 53 Year
  Sex: Male

DRUGS (12)
  1. BYSTOLIC [Suspect]
     Indication: HYPERTENSION
     Dosage: 10 MG (5 MG, 2 IN 1 D), ORAL
     Route: 048
     Dates: start: 20110101
  2. AVALIDE (IRBESARTAN, HYDROCHLOROTHIAZIDE) (IRBESARTAN, HYDROCHLOROTHIA [Concomitant]
  3. BYSTOLIC [Suspect]
     Indication: HYPERTENSION
     Dosage: 15 MG (5 MG, 3 IN 1 D), ORAL
     Route: 048
     Dates: start: 20110101
  4. AVAPRO (IRBESARTAN) (IRBESARTAN) [Concomitant]
  5. VIAGRA (SILDENAFIL) (SILDENAFIL) [Concomitant]
  6. VALIUM [Suspect]
  7. CRESTOR [Concomitant]
  8. LASIX [Concomitant]
  9. BYSTOLIC [Suspect]
     Indication: HYPERTENSION
     Dosage: 5 MG (5 MG, 1 IN 1 D), ORAL; 10 MG (10 MG, 1 IN 1 D), PER ORAL
     Route: 048
     Dates: start: 20090101, end: 20100601
  10. BYSTOLIC [Suspect]
     Indication: HYPERTENSION
     Dosage: 5 MG (5 MG, 1 IN 1 D), ORAL; 10 MG (10 MG, 1 IN 1 D), PER ORAL
     Route: 048
     Dates: start: 20100601
  11. NORCO (HYDROCODONEM ACETAMINOPHEN) (HYDROCODONE, ACTAMINOPHEN) [Concomitant]
  12. HYDROCHLOROTHIAZIDE [Concomitant]

REACTIONS (4)
  - CAROTID ARTERY OCCLUSION [None]
  - CORONARY ARTERY OCCLUSION [None]
  - DYSURIA [None]
  - CONDITION AGGRAVATED [None]
